FAERS Safety Report 25136581 (Version 1)
Quarter: 2025Q1

REPORT INFORMATION
  Report Type: Spontaneous
  Country: UA (occurrence: UA)
  Receive Date: 20250328
  Receipt Date: 20250328
  Transmission Date: 20250409
  Serious: Yes (Other)
  Sender: Harrow Health
  Company Number: UA-HARROW-HAR-2025-UA-00053

PATIENT

DRUGS (6)
  1. MAXIDEX [Suspect]
     Active Substance: DEXAMETHASONE
     Indication: Antiinflammatory therapy
     Route: 065
  2. MAXIDEX [Suspect]
     Active Substance: DEXAMETHASONE
  3. MAXIDEX [Suspect]
     Active Substance: DEXAMETHASONE
  4. MAXIDEX [Suspect]
     Active Substance: DEXAMETHASONE
  5. LEVOFLOXACIN [Concomitant]
     Active Substance: LEVOFLOXACIN
  6. DEXPANTHENOL [Concomitant]
     Active Substance: DEXPANTHENOL

REACTIONS (1)
  - Cystoid macular oedema [Unknown]
